FAERS Safety Report 7472683-3 (Version None)
Quarter: 2011Q2

REPORT INFORMATION
  Report Type: 
  Country: None (occurrence: None)
  Receive Date: 20110511
  Receipt Date: 20110503
  Transmission Date: 20111010
  Serious: Yes (Hospitalization)
  Sender: FDA-Public Use
  Company Number: GB-SANOFI-AVENTIS-2011SA027532

PATIENT
  Age: 83 Year
  Sex: Female
  Weight: 70.4 kg

DRUGS (8)
  1. WARFARIN SODIUM [Concomitant]
  2. MULTAQ [Suspect]
     Indication: ATRIAL FIBRILLATION
     Route: 048
     Dates: start: 20110322, end: 20110401
  3. LEVOTHYROXINE SODIUM [Concomitant]
     Dosage: 50 MCG AND 75 MCG (NOS)
  4. AMIODARONE HCL [Concomitant]
     Dates: start: 20110301
  5. CEFUROXIME [Concomitant]
     Route: 042
  6. CLARITHROMYCIN [Concomitant]
  7. FUROSEMIDE [Concomitant]
  8. PREDNISOLONE [Concomitant]

REACTIONS (3)
  - OFF LABEL USE [None]
  - DYSPNOEA [None]
  - ACUTE PULMONARY OEDEMA [None]
